FAERS Safety Report 19372991 (Version 1)
Quarter: 2021Q2

REPORT INFORMATION
  Report Type: Report from Study
  Country: None (occurrence: US)
  Receive Date: 20210604
  Receipt Date: 20210604
  Transmission Date: 20210717
  Serious: Yes (Death, Other)
  Sender: FDA-Public Use
  Company Number: US-CLINIGEN GROUP PLC/ CLINIGEN HEALTHCARE LTD-US-CLGN-21-00303

PATIENT
  Age: 71 Year
  Sex: Male

DRUGS (16)
  1. PROLEUKIN [Suspect]
     Active Substance: ALDESLEUKIN
     Indication: METASTATIC MALIGNANT MELANOMA
     Dates: start: 20210420, end: 20210420
  2. GABAPENTINE [Concomitant]
     Active Substance: GABAPENTIN
     Indication: PRODUCT USED FOR UNKNOWN INDICATION
     Route: 048
  3. TRIAZOLAM. [Concomitant]
     Active Substance: TRIAZOLAM
     Indication: INSOMNIA
     Route: 048
  4. VITAMIN C [Concomitant]
     Active Substance: ASCORBIC ACID
     Indication: SUPPLEMENTATION THERAPY
  5. VITAMIN D3 [Concomitant]
     Active Substance: CHOLECALCIFEROL
     Indication: SUPPLEMENTATION THERAPY
  6. SELENIUM [Concomitant]
     Active Substance: SELENIUM
     Indication: SUPPLEMENTATION THERAPY
  7. PROLEUKIN [Suspect]
     Active Substance: ALDESLEUKIN
     Dates: start: 20210504, end: 20210504
  8. LEVOTHYROXIN [Concomitant]
     Active Substance: LEVOTHYROXINE
     Indication: PRODUCT USED FOR UNKNOWN INDICATION
     Route: 048
  9. LUTEIN [Concomitant]
     Active Substance: LUTEIN
     Indication: SUPPLEMENTATION THERAPY
  10. MVI [Concomitant]
     Active Substance: VITAMINS
     Indication: SUPPLEMENTATION THERAPY
  11. NIVOLUMAB [Concomitant]
     Active Substance: NIVOLUMAB
     Indication: METASTATIC MALIGNANT MELANOMA
     Route: 042
     Dates: start: 20210414, end: 20210414
  12. DIAZEPAM. [Concomitant]
     Active Substance: DIAZEPAM
     Indication: INSOMNIA
     Route: 048
  13. VITAMIN B12 [Concomitant]
     Active Substance: CYANOCOBALAMIN
     Indication: SUPPLEMENTATION THERAPY
  14. MINERAL COMPLEX [Concomitant]
     Indication: SUPPLEMENTATION THERAPY
  15. QUERCETIN [Concomitant]
     Active Substance: QUERCETIN
     Indication: SUPPLEMENTATION THERAPY
  16. BROMELAIN ENZYME [Concomitant]
     Indication: SUPPLEMENTATION THERAPY

REACTIONS (18)
  - Delirium [Recovered/Resolved]
  - Hepatitis [Recovered/Resolved]
  - Arrhythmia [Fatal]
  - Hypoxia [Unknown]
  - Renal impairment [Recovered/Resolved]
  - Diarrhoea [Unknown]
  - Lethargy [Unknown]
  - Fatigue [Unknown]
  - Cardiac failure [Fatal]
  - Colitis [Recovered/Resolved]
  - Tachycardia [Unknown]
  - Thrombocytopenia [Recovered/Resolved]
  - Hypotension [Unknown]
  - Hyperkalaemia [Unknown]
  - Cardiac arrest [Fatal]
  - Atrial fibrillation [Fatal]
  - Tachypnoea [Unknown]
  - Oliguria [Unknown]

NARRATIVE: CASE EVENT DATE: 20210420
